FAERS Safety Report 8575631-8 (Version None)
Quarter: 2012Q3

REPORT INFORMATION
  Report Type: 
  Country: None (occurrence: None)
  Receive Date: 20120807
  Receipt Date: 20120802
  Transmission Date: 20120928
  Serious: Yes (Other)
  Sender: FDA-Public Use
  Company Number: PHHY2012BR064797

PATIENT
  Sex: Female
  Weight: 101.7 kg

DRUGS (1)
  1. DIOVAN [Suspect]
     Indication: HYPERTENSION
     Dosage: 1 DF, PER DAY
     Route: 048
     Dates: start: 20120601

REACTIONS (10)
  - DEATH OF RELATIVE [None]
  - LYMPHOEDEMA [None]
  - FEELING ABNORMAL [None]
  - DEPRESSION [None]
  - OBESITY SURGERY [None]
  - OEDEMA PERIPHERAL [None]
  - DIZZINESS [None]
  - ERYSIPELAS [None]
  - DEPRESSED MOOD [None]
  - FEELING HOT [None]
